FAERS Safety Report 7690788-9 (Version None)
Quarter: 2011Q3

REPORT INFORMATION
  Report Type: 
  Country: None (occurrence: None)
  Receive Date: 20110812
  Receipt Date: 20110802
  Transmission Date: 20111222
  Serious: Yes (Other)
  Sender: FDA-Public Use
  Company Number: ACO_26147_2011

PATIENT
  Age: 80 Year
  Sex: Male
  Weight: 82.5 kg

DRUGS (4)
  1. AMPYRA [Suspect]
     Indication: GAIT DISTURBANCE
     Dosage: 10 MG, BID, ORAL
     Route: 048
     Dates: start: 20110623, end: 20110715
  2. SIMVASTATIN [Concomitant]
  3. HYDROCHLOROTHIAZIDE *HYDROCHLROTHIAZIDE) [Concomitant]
  4. ATENOLOL [Concomitant]

REACTIONS (1)
  - BLOOD CREATININE INCREASED [None]
